FAERS Safety Report 5561036-0 (Version None)
Quarter: 2007Q4

REPORT INFORMATION
  Report Type: 
  Country: None (occurrence: None)
  Receive Date: 20071215
  Receipt Date: 20071130
  Transmission Date: 20080405
  Serious: No
  Sender: FDA-Public Use
  Company Number: US-ABBOTT-07P-163-0426982-00

PATIENT
  Sex: Female
  Weight: 122.72 kg

DRUGS (10)
  1. HUMIRA [Suspect]
     Indication: PSORIATIC ARTHROPATHY
     Route: 058
     Dates: start: 20071116
  2. DIOVAN HCT [Concomitant]
     Indication: HYPERTENSION
     Dosage: 160/25 MG
     Route: 048
  3. CATAPRESS II PATCH [Concomitant]
     Indication: HYPERTENSION
     Dosage: UNKNOWN CHANGE WEEKLY
     Route: 062
  4. ATORVASTATIN CALCIUM [Concomitant]
     Indication: BLOOD CHOLESTEROL
     Route: 048
  5. GLIPIZIDE [Concomitant]
     Indication: DIABETES MELLITUS
     Route: 048
  6. LEVOTHYROXINE SODIUM [Concomitant]
     Indication: HYPOTHYROIDISM
     Route: 048
  7. METHOTREXATE [Concomitant]
     Indication: PSORIATIC ARTHROPATHY
     Route: 048
  8. FOLIC ACID [Concomitant]
     Indication: PSORIATIC ARTHROPATHY
     Route: 048
  9. CELECOXIB [Concomitant]
     Indication: PAIN
     Route: 048
  10. ESOMEPRAZOLE MAGNESIUM [Concomitant]
     Indication: DYSPEPSIA

REACTIONS (3)
  - ACCIDENTAL EXPOSURE [None]
  - ACCIDENTAL NEEDLE STICK [None]
  - DRUG ADMINISTRATION ERROR [None]
